FAERS Safety Report 17948786 (Version 7)
Quarter: 2023Q1

REPORT INFORMATION
  Report Type: Report from Study
  Country: JP (occurrence: JP)
  Receive Date: 20200626
  Receipt Date: 20230201
  Transmission Date: 20230418
  Serious: Yes (Hospitalization)
  Sender: FDA-Public Use
  Company Number: JP-ONO-2020JP014773

PATIENT
  Age: 53 Year
  Sex: Male
  Weight: 88.3 kg

DRUGS (25)
  1. ETELCALCETIDE [Suspect]
     Active Substance: ETELCALCETIDE
     Indication: Hyperparathyroidism secondary
     Dosage: 5 MG, Q56H
     Route: 010
     Dates: start: 20180404, end: 20190107
  2. ETELCALCETIDE [Suspect]
     Active Substance: ETELCALCETIDE
     Dosage: 10 MG, Q56H
     Route: 010
     Dates: start: 20190109
  3. DARBEPOETIN ALFA [Concomitant]
     Active Substance: DARBEPOETIN ALFA
     Dosage: 40 UG, QW
     Route: 042
     Dates: start: 20190814, end: 20191023
  4. DARBEPOETIN ALFA [Concomitant]
     Active Substance: DARBEPOETIN ALFA
     Dosage: 30 UG, QW
     Dates: start: 20191030, end: 20191113
  5. DARBEPOETIN ALFA [Concomitant]
     Active Substance: DARBEPOETIN ALFA
     Dosage: 20 UG, QW
     Dates: start: 20191120, end: 20200429
  6. DARBEPOETIN ALFA [Concomitant]
     Active Substance: DARBEPOETIN ALFA
     Dosage: 30 UG, QW
     Dates: start: 20200506, end: 20200513
  7. DARBEPOETIN ALFA [Concomitant]
     Active Substance: DARBEPOETIN ALFA
     Dosage: 40 UG, QW
     Dates: start: 20200520, end: 20200708
  8. DARBEPOETIN ALFA [Concomitant]
     Active Substance: DARBEPOETIN ALFA
     Dosage: 60 UG, QW
     Dates: start: 20200715, end: 20200811
  9. DARBEPOETIN ALFA [Concomitant]
     Active Substance: DARBEPOETIN ALFA
     Dosage: 60 UG, QW
     Dates: start: 20200911, end: 20200916
  10. DARBEPOETIN ALFA [Concomitant]
     Active Substance: DARBEPOETIN ALFA
     Dosage: 20 UG, QW
     Route: 040
     Dates: start: 20181121, end: 20190327
  11. DARBEPOETIN ALFA [Concomitant]
     Active Substance: DARBEPOETIN ALFA
     Dosage: 30 UG, QW
     Route: 040
     Dates: start: 20190403, end: 20190403
  12. DARBEPOETIN ALFA [Concomitant]
     Active Substance: DARBEPOETIN ALFA
     Dosage: 40 UG, QW
     Route: 040
     Dates: start: 20190410, end: 20190508
  13. DARBEPOETIN ALFA [Concomitant]
     Active Substance: DARBEPOETIN ALFA
     Dosage: 50 UG, QW
     Route: 040
     Dates: start: 20190515, end: 20190703
  14. DARBEPOETIN ALFA [Concomitant]
     Active Substance: DARBEPOETIN ALFA
     Dosage: 40 UG, QW
     Dates: start: 20190710, end: 20190807
  15. OXAROL [Concomitant]
     Active Substance: MAXACALCITOL
     Dosage: 2.5 UG, Q56H
     Route: 042
     Dates: start: 20171206, end: 20201005
  16. OXAROL [Concomitant]
     Active Substance: MAXACALCITOL
     Dosage: 5 UG, Q84H
     Route: 040
     Dates: start: 20201007
  17. FERRIC CITRATE ANHYDROUS [Concomitant]
     Active Substance: FERRIC CITRATE ANHYDROUS
     Dosage: 2250 MG, EVERYDAY
     Route: 065
     Dates: end: 20190616
  18. Fesin [Concomitant]
     Dosage: 40 MG, MONTHLY
     Route: 042
     Dates: end: 20180411
  19. Fesin [Concomitant]
     Dosage: 40 MG, MONTHLY
     Route: 042
     Dates: start: 20200513, end: 20200513
  20. Fesin [Concomitant]
     Dosage: 20 MG, QW
     Route: 042
     Dates: start: 20200520, end: 20200520
  21. Fesin [Concomitant]
     Dosage: 40 MG, QW
     Route: 042
     Dates: start: 20200527, end: 20210224
  22. Fesin [Concomitant]
     Dosage: 20 MG, QW
     Route: 042
     Dates: start: 20210303, end: 20220112
  23. P-tol [Concomitant]
     Dosage: 1500 MG, EVERYDAY
     Route: 065
     Dates: start: 20190617, end: 20190813
  24. BIXALOMER [Concomitant]
     Active Substance: BIXALOMER
     Dosage: 1500 MG, EVERYDAY
     Route: 065
     Dates: start: 20180409, end: 20180812
  25. BIXALOMER [Concomitant]
     Active Substance: BIXALOMER
     Dosage: 2250 MG, EVERYDAY
     Route: 065
     Dates: start: 20180813

REACTIONS (2)
  - Large intestine polyp [Recovering/Resolving]
  - Heat illness [Recovering/Resolving]

NARRATIVE: CASE EVENT DATE: 20200605
